FAERS Safety Report 5980071-1 (Version None)
Quarter: 2008Q4

REPORT INFORMATION
  Report Type: 
  Country: None (occurrence: None)
  Receive Date: 20081128
  Receipt Date: 20081110
  Transmission Date: 20090506
  Serious: Yes (Hospitalization)
  Sender: FDA-Public Use
  Company Number: 2008PL000209

PATIENT
  Age: 50 Year

DRUGS (3)
  1. AZATHIOPRINE [Suspect]
     Indication: DRUG USE FOR UNKNOWN INDICATION
  2. CYCLOSPORINE [Concomitant]
  3. PREDNISONE TAB [Concomitant]

REACTIONS (1)
  - RENAL CELL CARCINOMA [None]
